FAERS Safety Report 12920892 (Version 1)
Quarter: 2016Q4

REPORT INFORMATION
  Report Type: Spontaneous
  Country: US (occurrence: US)
  Receive Date: 20161107
  Receipt Date: 20161107
  Transmission Date: 20170207
  Serious: Yes (Other)
  Sender: FDA-Public Use
  Company Number: None

PATIENT
  Age: 71 Year
  Sex: Female

DRUGS (1)
  1. VISIPAQUE [Suspect]
     Active Substance: IODIXANOL
     Indication: IMAGING PROCEDURE
     Route: 040
     Dates: start: 20160616, end: 20161101

REACTIONS (2)
  - Rash [None]
  - Contrast media reaction [None]

NARRATIVE: CASE EVENT DATE: 20161101
